FAERS Safety Report 9054928 (Version 1)
Quarter: 2013Q1

REPORT INFORMATION
  Report Type: Spontaneous
  Country: MX (occurrence: MX)
  Receive Date: 20130209
  Receipt Date: 20130209
  Transmission Date: 20140127
  Serious: Yes (Life-Threatening)
  Sender: FDA-Public Use
  Company Number: MX-AMGEN-MEXSP2013006561

PATIENT
  Sex: 0

DRUGS (1)
  1. NPLATE [Suspect]
     Indication: THROMBOCYTOPENIA
     Dosage: 4.3 MUG/KG, QWK
     Route: 058

REACTIONS (2)
  - Thrombocytosis [Recovered/Resolved]
  - Fatigue [Recovered/Resolved]
